FAERS Safety Report 24928730 (Version 1)
Quarter: 2025Q1

REPORT INFORMATION
  Report Type: Spontaneous
  Country: GB (occurrence: GB)
  Receive Date: 20250205
  Receipt Date: 20250205
  Transmission Date: 20250409
  Serious: Yes (Disabling, Other)
  Sender: SANOFI AVENTIS
  Company Number: GB-MHRA-34574526

PATIENT
  Age: 58 Year
  Sex: Male

DRUGS (1)
  1. DUPILUMAB [Suspect]
     Active Substance: DUPILUMAB
     Route: 058

REACTIONS (4)
  - Joint swelling [Unknown]
  - Urticaria papular [Unknown]
  - Peripheral swelling [Unknown]
  - Papule [Unknown]
